FAERS Safety Report 8586369-5 (Version None)
Quarter: 2012Q3

REPORT INFORMATION
  Report Type: 
  Country: None (occurrence: None)
  Receive Date: 20120810
  Receipt Date: 20060610
  Transmission Date: 20120928
  Serious: Yes (Other)
  Sender: FDA-Public Use
  Company Number: GB-ROCHE-1099624

PATIENT
  Sex: Female

DRUGS (4)
  1. ZOMETA [Concomitant]
  2. AROMASIN [Concomitant]
  3. HERCEPTIN [Suspect]
     Indication: PRODUCT USED FOR UNKNOWN INDICATION
  4. TRAMADOL HCL [Concomitant]

REACTIONS (1)
  - SCLERITIS [None]
